FAERS Safety Report 8407689-0 (Version None)
Quarter: 2012Q2

REPORT INFORMATION
  Report Type: 
  Country: None (occurrence: None)
  Receive Date: 20120604
  Receipt Date: 20120524
  Transmission Date: 20120825
  Serious: Yes (Other)
  Sender: FDA-Public Use
  Company Number: US-ASTRAZENECA-2012SE26587

PATIENT
  Sex: Male

DRUGS (1)
  1. SYMBICORT [Suspect]
     Dosage: 160/4.5 MCG 2 PUFFS BID
     Route: 055
     Dates: start: 20120423

REACTIONS (3)
  - DRUG DOSE OMISSION [None]
  - DYSPNOEA [None]
  - MALAISE [None]
